FAERS Safety Report 6372719-7 (Version None)
Quarter: 2009Q3

REPORT INFORMATION
  Report Type: 
  Country: None (occurrence: None)
  Receive Date: 20090924
  Receipt Date: 20090410
  Transmission Date: 20100115
  Serious: Yes (Other)
  Sender: FDA-Public Use
  Company Number: US-ASTRAZENECA-2008UW27625

PATIENT
  Age: 623 Month
  Sex: Female
  Weight: 54.4 kg

DRUGS (10)
  1. SEROQUEL [Suspect]
     Indication: DEPRESSION
     Dosage: 25 MG, 200MG, 400MG
     Route: 048
  2. SEROQUEL [Suspect]
     Indication: INSOMNIA
     Dosage: 25 MG, 200MG, 400MG
     Route: 048
  3. HALDOL [Concomitant]
  4. SEZOPE [Concomitant]
  5. PAXIL [Concomitant]
  6. ZOLOFT [Concomitant]
  7. PROZAC [Concomitant]
  8. CLONOPIN [Concomitant]
  9. XANAX [Concomitant]
  10. ATTIVARV [Concomitant]

REACTIONS (2)
  - CONVULSION [None]
  - PANCREATITIS [None]
